FAERS Safety Report 4438408-0 (Version None)
Quarter: 2004Q3

REPORT INFORMATION
  Report Type: 
  Country: None (occurrence: None)
  Receive Date: 20040831
  Receipt Date: 20040824
  Transmission Date: 20050211
  Serious: Yes (Other)
  Sender: FDA-Public Use
  Company Number: PHBS2004CA11154

PATIENT
  Age: 48 Year
  Sex: Female

DRUGS (1)
  1. TEGRETOL [Suspect]
     Indication: PAIN
     Dosage: 200 MG, QID
     Route: 048
     Dates: start: 20040819

REACTIONS (3)
  - MUSCLE SPASMS [None]
  - OROPHARYNGEAL SPASM [None]
  - RESTLESSNESS [None]
